FAERS Safety Report 6974693-9 (Version None)
Quarter: 2010Q3

REPORT INFORMATION
  Report Type: 
  Country: None (occurrence: None)
  Receive Date: 20100909
  Receipt Date: 20090203
  Transmission Date: 20110219
  Serious: No
  Sender: FDA-Public Use
  Company Number: US-WYE-H07128408

PATIENT
  Sex: Female
  Weight: 90.8 kg

DRUGS (7)
  1. PRISTIQ [Suspect]
     Indication: DEPRESSION
     Route: 048
     Dates: start: 20081118
  2. ARICEPT [Concomitant]
  3. NORCO [Concomitant]
  4. ZESTRIL [Concomitant]
  5. NEURONTIN [Concomitant]
  6. ABILIFY [Concomitant]
  7. ATORVASTATIN [Concomitant]

REACTIONS (4)
  - ABDOMINAL PAIN UPPER [None]
  - DECREASED APPETITE [None]
  - NAUSEA [None]
  - WEIGHT DECREASED [None]
